FAERS Safety Report 24759253 (Version 1)
Quarter: 2024Q4

REPORT INFORMATION
  Report Type: Spontaneous
  Country: IE (occurrence: IE)
  Receive Date: 20241220
  Receipt Date: 20241220
  Transmission Date: 20250115
  Serious: Yes (Other)
  Sender: RANBAXY
  Company Number: IE-SUN PHARMACEUTICAL INDUSTRIES LTD-2024R1-485781

PATIENT
  Sex: Male

DRUGS (4)
  1. ACETAZOLAMIDE [Suspect]
     Active Substance: ACETAZOLAMIDE
     Indication: Orbital oedema
     Dosage: 500 MILLIGRAM, QID
     Route: 048
  2. DEXAMETHASONE [Suspect]
     Active Substance: DEXAMETHASONE
     Indication: Orbital oedema
     Dosage: 0.1% EVERY 2 HOURS
     Route: 061
  3. DORZOLAMIDE\TIMOLOL [Suspect]
     Active Substance: DORZOLAMIDE\TIMOLOL
     Indication: Orbital oedema
     Dosage: UNK UNK, BID
     Route: 061
  4. TRAVOPROST [Suspect]
     Active Substance: TRAVOPROST
     Indication: Orbital oedema
     Dosage: UNK, QD
     Route: 061

REACTIONS (2)
  - Condition aggravated [Unknown]
  - Pupillary reflex impaired [Recovering/Resolving]
